FAERS Safety Report 8766022 (Version 1)
Quarter: 2012Q4

REPORT INFORMATION
  Report Type: 
  Country: JP (occurrence: JP)
  Receive Date: 20120904
  Receipt Date: 20120904
  Transmission Date: 20130627
  Serious: Yes (Hospitalization)
  Sender: FDA-Public Use
  Company Number: JP-ROCHE-1002931

PATIENT
  Age: 55 Year
  Sex: Male
  Weight: 69 kg

DRUGS (13)
  1. MIRCERA [Suspect]
     Indication: NEPHROGENIC ANAEMIA
     Route: 042
     Dates: start: 20110725
  2. BAYASPIRIN [Concomitant]
     Indication: CEREBRAL INFARCTION
     Route: 048
     Dates: start: 20091109
  3. PLAVIX [Concomitant]
     Indication: CEREBRAL INFARCTION
     Route: 048
     Dates: start: 20091106
  4. DIART [Concomitant]
     Indication: RENAL FAILURE CHRONIC
     Route: 048
     Dates: start: 20091106
  5. PARIET [Concomitant]
     Route: 048
     Dates: start: 20091106
  6. WARFARIN [Concomitant]
     Indication: MYOCARDIAL ISCHAEMIA
     Route: 048
     Dates: start: 20100604
  7. BASEN [Concomitant]
     Indication: TYPE 2 DIABETES MELLITUS
     Route: 048
     Dates: start: 20091208
  8. NORVASC [Concomitant]
     Indication: HYPERTENSION
     Route: 048
     Dates: start: 20110725
  9. NOVORAPID [Concomitant]
     Indication: TYPE 2 DIABETES MELLITUS
     Dosage: 1 and six units x 1 ten units x day
     Route: 058
     Dates: start: 20091106
  10. ALLELOCK [Concomitant]
     Indication: PRURITUS
     Route: 048
     Dates: start: 20110909
  11. HALCION [Concomitant]
     Indication: SLEEP DISORDER
     Route: 048
     Dates: start: 20110817
  12. HEPARIN SODIUM [Concomitant]
     Dosage: Dosage is uncertain.
     Route: 065
  13. NESP [Concomitant]

REACTIONS (3)
  - Lacunar infarction [Recovered/Resolved]
  - Pruritus [Not Recovered/Not Resolved]
  - Sleep disorder [Not Recovered/Not Resolved]
